FAERS Safety Report 16196236 (Version 1)
Quarter: 2019Q2

REPORT INFORMATION
  Report Type: Spontaneous
  Country: US (occurrence: US)
  Receive Date: 20190415
  Receipt Date: 20190415
  Transmission Date: 20190711
  Serious: No
  Sender: FDA-Public Use
  Company Number: US-MACLEODS PHARMACEUTICALS US LTD-MAC2019020878

PATIENT

DRUGS (1)
  1. OSELTAMIVIR 75MG CAPSULES [Suspect]
     Active Substance: OSELTAMIVIR
     Indication: INFLUENZA
     Dosage: 75 MILLIGRAM
     Route: 048
     Dates: start: 20190330, end: 20190331

REACTIONS (2)
  - Throat tightness [Unknown]
  - Oropharyngeal pain [Recovered/Resolved]
